FAERS Safety Report 18597424 (Version 1)
Quarter: 2020Q4

REPORT INFORMATION
  Report Type: Spontaneous
  Country: US (occurrence: US)
  Receive Date: 20201209
  Receipt Date: 20201209
  Transmission Date: 20210114
  Serious: No
  Sender: FDA-Public Use
  Company Number: US-IBSA PHARMA INC.-2020IBS000135

PATIENT

DRUGS (2)
  1. TIROSINT [Suspect]
     Active Substance: LEVOTHYROXINE SODIUM
     Indication: THYROID HORMONE REPLACEMENT THERAPY
     Dosage: 50 ?G, QD
     Route: 048
     Dates: start: 2014
  2. TIROSINT [Suspect]
     Active Substance: LEVOTHYROXINE SODIUM
     Dosage: 50 ?G, QOD
     Route: 048

REACTIONS (9)
  - Palpitations [Unknown]
  - Headache [Unknown]
  - Insomnia [Unknown]
  - Feeling hot [Unknown]
  - Temperature intolerance [Unknown]
  - Decreased appetite [Unknown]
  - Urticaria [Unknown]
  - Thyroxine free [Unknown]
  - Blood pressure increased [Unknown]

NARRATIVE: CASE EVENT DATE: 2020
